FAERS Safety Report 6035438-2 (Version None)
Quarter: 2009Q1

REPORT INFORMATION
  Report Type: 
  Country: None (occurrence: None)
  Receive Date: 20090112
  Receipt Date: 20090112
  Transmission Date: 20090719
  Serious: Yes (Life-Threatening, Other)
  Sender: FDA-Public Use
  Company Number: None

PATIENT
  Age: 64 Year
  Sex: Male
  Weight: 95.2554 kg

DRUGS (3)
  1. LAMICTAL [Suspect]
     Indication: BIPOLAR DISORDER
     Dosage: 150MG TWICE A DAY PO
     Route: 048
     Dates: start: 20060101, end: 20080101
  2. LAMICTAL [Suspect]
     Indication: CONVULSION
     Dosage: 150MG TWICE A DAY PO
     Route: 048
     Dates: start: 20060101, end: 20080101
  3. PAROXETINE HCL [Suspect]
     Indication: NERVOUSNESS
     Dosage: 20MG ONCE A DAY PO
     Route: 048
     Dates: start: 20020101, end: 20080101

REACTIONS (9)
  - AGITATION [None]
  - AMNESIA [None]
  - BALANCE DISORDER [None]
  - CONFUSIONAL STATE [None]
  - CONVULSION [None]
  - DISTURBANCE IN ATTENTION [None]
  - DIZZINESS [None]
  - ILL-DEFINED DISORDER [None]
  - VISION BLURRED [None]
